FAERS Safety Report 16476875 (Version 2)
Quarter: 2019Q3

REPORT INFORMATION
  Report Type: Report from Study
  Country: None (occurrence: ZA)
  Receive Date: 20190626
  Receipt Date: 20190727
  Transmission Date: 20191004
  Serious: Yes (Hospitalization, Other)
  Sender: FDA-Public Use
  Company Number: ZA-ABBVIE-19K-143-2829512-00

PATIENT
  Age: 52 Year
  Sex: Male

DRUGS (1)
  1. HUMIRA [Suspect]
     Active Substance: ADALIMUMAB
     Indication: CROHN^S DISEASE
     Route: 058
     Dates: start: 201408

REACTIONS (7)
  - Crohn^s disease [Unknown]
  - Drug level decreased [Unknown]
  - Ileal ulcer perforation [Unknown]
  - Abdominal discomfort [Not Recovered/Not Resolved]
  - Post procedural complication [Unknown]
  - Ileal stenosis [Recovering/Resolving]
  - Abdominal distension [Not Recovered/Not Resolved]

NARRATIVE: CASE EVENT DATE: 201903
